FAERS Safety Report 9916113 (Version 2)
Quarter: 2014Q1

REPORT INFORMATION
  Report Type: Spontaneous
  Country: US (occurrence: US)
  Receive Date: 20140221
  Receipt Date: 20140319
  Transmission Date: 20141002
  Serious: Yes (Other)
  Sender: FDA-Public Use
  Company Number: US-BRISTOL-MYERS SQUIBB COMPANY-20180584

PATIENT
  Age: 17 Year
  Sex: Female
  Weight: 77.1 kg

DRUGS (3)
  1. ABILIFY [Suspect]
     Dosage: 1DF=5MG TO 15MG?DOSES DECREASED FROM TWICE A DAY TO ONCE DAILY ON 04FEB2014
     Dates: start: 201303
  2. LEXAPRO [Concomitant]
  3. VISTARIL [Concomitant]

REACTIONS (2)
  - Blindness [Unknown]
  - Weight increased [Unknown]
